FAERS Safety Report 24157943 (Version 1)
Quarter: 2024Q3

REPORT INFORMATION
  Report Type: Spontaneous
  Country: US (occurrence: None)
  Receive Date: 20240731
  Receipt Date: 20240731
  Transmission Date: 20241016
  Serious: No
  Sender: Public
  Company Number: None

PATIENT
  Sex: Female

DRUGS (1)
  1. VERZENIO [Suspect]
     Active Substance: ABEMACICLIB
     Indication: Breast cancer female
     Dosage: 100MG BID ORAL?
     Route: 048
     Dates: start: 202308

REACTIONS (3)
  - Urinary tract infection [None]
  - Full blood count decreased [None]
  - Migraine [None]
